FAERS Safety Report 9200457 (Version 1)
Quarter: 2013Q1

REPORT INFORMATION
  Report Type: Spontaneous
  Country: US (occurrence: US)
  Receive Date: 20130329
  Receipt Date: 20130329
  Transmission Date: 20140127
  Serious: No
  Sender: FDA-Public Use
  Company Number: US-ASTRAZENECA-2013SE18787

PATIENT
  Sex: Male

DRUGS (2)
  1. CRESTOR [Suspect]
     Route: 048
     Dates: end: 201301
  2. NIASPAN [Suspect]
     Route: 065
     Dates: start: 2005, end: 201301

REACTIONS (1)
  - Muscle spasms [Unknown]
